FAERS Safety Report 14269304 (Version 2)
Quarter: 2018Q2

REPORT INFORMATION
  Report Type: Spontaneous
  Country: US (occurrence: US)
  Receive Date: 20171211
  Receipt Date: 20180628
  Transmission Date: 20180711
  Serious: Yes (Hospitalization, Other)
  Sender: FDA-Public Use
  Company Number: US-OTSUKA-2017_021515

PATIENT
  Sex: Male

DRUGS (2)
  1. ABILIFY [Suspect]
     Active Substance: ARIPIPRAZOLE
     Indication: BIPOLAR DISORDER
     Dosage: 20 MG, QD
     Route: 065
     Dates: start: 2003
  2. ABILIFY [Suspect]
     Active Substance: ARIPIPRAZOLE
     Indication: MAJOR DEPRESSION
     Dosage: UNK
     Route: 048
     Dates: start: 2010, end: 2014

REACTIONS (16)
  - Obsessive-compulsive disorder [Not Recovered/Not Resolved]
  - Economic problem [Unknown]
  - Mental disorder [Unknown]
  - Sexual dysfunction [Not Recovered/Not Resolved]
  - Compulsive sexual behaviour [Not Recovered/Not Resolved]
  - Eating disorder [Not Recovered/Not Resolved]
  - Compulsive shopping [Not Recovered/Not Resolved]
  - Brain injury [Unknown]
  - Gambling disorder [Not Recovered/Not Resolved]
  - Divorced [Unknown]
  - Compulsive hoarding [Not Recovered/Not Resolved]
  - Suicide attempt [Not Recovered/Not Resolved]
  - Injury [Unknown]
  - Suicidal ideation [Not Recovered/Not Resolved]
  - Sexually transmitted disease [Unknown]
  - Loss of employment [Unknown]
